FAERS Safety Report 6817094-6 (Version None)
Quarter: 2010Q3

REPORT INFORMATION
  Report Type: 
  Country: None (occurrence: None)
  Receive Date: 20100706
  Receipt Date: 20100628
  Transmission Date: 20110219
  Serious: Yes (Life-Threatening)
  Sender: FDA-Public Use
  Company Number: DE-CELGENEUS-062-50794-10062486

PATIENT
  Age: 72 Year
  Sex: Male
  Weight: 73 kg

DRUGS (4)
  1. VIDAZA [Suspect]
     Route: 051
     Dates: start: 20100614, end: 20100618
  2. CYTARABINE [Suspect]
     Route: 051
     Dates: start: 20100619
  3. DAUNORUBICIN HCL [Suspect]
     Route: 051
     Dates: start: 20100621
  4. HYDROXYUREA [Suspect]
     Route: 048
     Dates: start: 20100608, end: 20100609

REACTIONS (1)
  - SEPSIS [None]
